FAERS Safety Report 22988349 (Version 3)
Quarter: 2023Q4

REPORT INFORMATION
  Report Type: Spontaneous
  Country: JP (occurrence: JP)
  Receive Date: 20230926
  Receipt Date: 20231204
  Transmission Date: 20240110
  Serious: Yes (Other)
  Sender: FDA-Public Use
  Company Number: JP-GLAXOSMITHKLINE-JP2023JPN129822

PATIENT

DRUGS (1)
  1. DAPRODUSTAT [Suspect]
     Active Substance: DAPRODUSTAT
     Dosage: 2 MG
     Dates: start: 20230725

REACTIONS (4)
  - Gastrointestinal haemorrhage [Unknown]
  - Transferrin saturation decreased [Unknown]
  - Serum ferritin increased [Unknown]
  - Therapeutic product effect incomplete [Unknown]
